FAERS Safety Report 9255897 (Version 6)
Quarter: 2013Q4

REPORT INFORMATION
  Report Type: Report from Study
  Country: US (occurrence: US)
  Receive Date: 20130425
  Receipt Date: 20131018
  Transmission Date: 20140711
  Serious: Yes (Death, Hospitalization)
  Sender: FDA-Public Use
  Company Number: US-ACTELION-A-US2013-81594

PATIENT
  Age: 61 Year
  Sex: Female

DRUGS (4)
  1. VELETRI [Suspect]
     Indication: PULMONARY ARTERIAL HYPERTENSION
     Dosage: 19 NG/KG, PER MIN
     Route: 042
     Dates: start: 20130306, end: 20130829
  2. VELETRI [Suspect]
     Dosage: 15 NG/KG, PER MIN
     Route: 042
     Dates: start: 20130305
  3. ADCIRCA [Concomitant]
  4. COUMADIN [Concomitant]

REACTIONS (6)
  - Pulmonary arterial hypertension [Fatal]
  - Pneumonia [Unknown]
  - Confusional state [Unknown]
  - Oxygen saturation decreased [Unknown]
  - Dyspnoea [Unknown]
  - Oedema [Unknown]
